FAERS Safety Report 15263367 (Version 3)
Quarter: 2019Q1

REPORT INFORMATION
  Report Type: Spontaneous
  Country: US (occurrence: US)
  Receive Date: 20180810
  Receipt Date: 20190327
  Transmission Date: 20190417
  Serious: No
  Sender: FDA-Public Use
  Company Number: US-ASTRAZENECA-2018SE92053

PATIENT
  Age: 27606 Day
  Sex: Female

DRUGS (1)
  1. BYDUREON BCISE [Suspect]
     Active Substance: EXENATIDE
     Indication: TYPE 2 DIABETES MELLITUS
     Route: 058
     Dates: start: 20180420

REACTIONS (13)
  - Drug ineffective [Unknown]
  - Injection site mass [Unknown]
  - Balance disorder [Unknown]
  - Anxiety [Unknown]
  - Irritability [Unknown]
  - Urinary tract disorder [Not Recovered/Not Resolved]
  - Weight increased [Not Recovered/Not Resolved]
  - Incorrect dose administered by device [Unknown]
  - Intentional product misuse [Unknown]
  - Device leakage [Unknown]
  - Vision blurred [Unknown]
  - Nervousness [Unknown]
  - Dizziness [Unknown]

NARRATIVE: CASE EVENT DATE: 20180716
